FAERS Safety Report 5177130-2 (Version None)
Quarter: 2006Q4

REPORT INFORMATION
  Report Type: 
  Country: None (occurrence: None)
  Receive Date: 20061207
  Receipt Date: 20061129
  Transmission Date: 20070319
  Serious: Yes (Hospitalization)
  Sender: FDA-Public Use
  Company Number: CIP06001488

PATIENT
  Age: 77 Year
  Sex: Female

DRUGS (4)
  1. ACTONEL [Suspect]
     Indication: OSTEOPOROSIS
     Dosage: 5 MG DAILY, ORAL
     Route: 048
     Dates: start: 20020101
  2. ACTONEL [Suspect]
     Indication: OSTEOPOROSIS
     Dosage: 35 MG ONCE WEEKLY, ORAL
     Route: 048
     Dates: end: 20060201
  3. CALCIUM (CALCIUM) [Concomitant]
  4. VITAMIN D [Concomitant]

REACTIONS (13)
  - ARTHRALGIA [None]
  - ARTICULAR CALCIFICATION [None]
  - BONE PAIN [None]
  - CHEST PAIN [None]
  - DYSPEPSIA [None]
  - DYSPHAGIA [None]
  - JAW DISORDER [None]
  - LOOSE TOOTH [None]
  - NEPHROLITHIASIS [None]
  - OESOPHAGEAL OEDEMA [None]
  - OESOPHAGEAL PAIN [None]
  - PHARYNGOLARYNGEAL PAIN [None]
  - TOOTH LOSS [None]
